FAERS Safety Report 10558526 (Version 1)
Quarter: 2014Q4

REPORT INFORMATION
  Report Type: Spontaneous
  Country: GB (occurrence: GB)
  Receive Date: 20141031
  Receipt Date: 20141031
  Transmission Date: 20150529
  Serious: Yes (Other)
  Sender: FDA-Public Use
  Company Number: GB-ACTAVISPR-2014-23225

PATIENT
  Age: 82 Year
  Sex: Male

DRUGS (4)
  1. OXYBUTYNIN (UNKNOWN) [Suspect]
     Active Substance: OXYBUTYNIN
     Indication: HYPERTONIC BLADDER
     Dosage: UNK
     Route: 065
  2. CITALOPRAM [Concomitant]
     Active Substance: CITALOPRAM HYDROBROMIDE
     Indication: AFFECTIVE DISORDER
     Dosage: 20 MG, UNKNOWN
     Route: 065
  3. HYDROMORPHONE [Concomitant]
     Active Substance: HYDROMORPHONE
     Indication: HYPERTONIC BLADDER
     Dosage: UNK
     Route: 065
  4. LIDOCAINE. [Concomitant]
     Active Substance: LIDOCAINE
     Indication: PENILE PAIN
     Dosage: UNK
     Route: 061

REACTIONS (2)
  - Orthostatic hypotension [Recovered/Resolved]
  - Dizziness [Recovered/Resolved]
